FAERS Safety Report 13930140 (Version 4)
Quarter: 2017Q4

REPORT INFORMATION
  Report Type: Spontaneous
  Country: US (occurrence: US)
  Receive Date: 20170901
  Receipt Date: 20171013
  Transmission Date: 20180320
  Serious: No
  Sender: FDA-Public Use
  Company Number: PHEH2017US027364

PATIENT
  Sex: Male

DRUGS (1)
  1. TASIGNA [Suspect]
     Active Substance: NILOTINIB
     Indication: PRODUCT USED FOR UNKNOWN INDICATION
     Dosage: 150 MG, BID ((2 CAPSULES EVERY 12 HOURS)
     Route: 048

REACTIONS (3)
  - Underdose [Unknown]
  - Product blister packaging issue [Unknown]
  - Product use complaint [Unknown]
